FAERS Safety Report 23667958 (Version 1)
Quarter: 2024Q1

REPORT INFORMATION
  Report Type: Spontaneous
  Country: US (occurrence: None)
  Receive Date: 20240322
  Receipt Date: 20240322
  Transmission Date: 20240409
  Serious: No
  Sender: FDA-Public Use
  Company Number: None

PATIENT
  Age: 67 Year
  Sex: Male
  Weight: 100.35 kg

DRUGS (2)
  1. CABOTEGRAVIR [Suspect]
     Active Substance: CABOTEGRAVIR
     Indication: Drug therapy
     Dosage: OTHER FREQUENCY : Q 2 MONTHS;?
     Route: 030
     Dates: start: 20230929, end: 20240212
  2. Apretude 600 mg/3ml [Concomitant]
     Dates: start: 20230929, end: 20240212

REACTIONS (1)
  - Nonspecific reaction [None]

NARRATIVE: CASE EVENT DATE: 20240212
